FAERS Safety Report 6172369-1 (Version None)
Quarter: 2009Q2

REPORT INFORMATION
  Report Type: 
  Country: None (occurrence: None)
  Receive Date: 20090429
  Receipt Date: 20090417
  Transmission Date: 20091009
  Serious: Yes (Hospitalization)
  Sender: FDA-Public Use
  Company Number: PHHY2009JP06394

PATIENT
  Sex: Female
  Weight: 74 kg

DRUGS (16)
  1. NEORAL [Suspect]
     Indication: MYASTHENIA GRAVIS
     Dosage: 200 MG, QD
     Route: 048
     Dates: start: 20090204, end: 20090302
  2. NEORAL [Suspect]
     Dosage: 250 MG, UNK
     Route: 048
     Dates: start: 20090303
  3. NEORAL [Suspect]
     Dosage: 150 MG, UNK
     Route: 048
  4. MUCOSTA [Suspect]
     Indication: ABDOMINAL PAIN UPPER
     Dosage: 300 MG, UNK
     Route: 048
     Dates: start: 20090130
  5. MUCOSTA [Suspect]
     Indication: NAUSEA
  6. STEROIDS NOS [Concomitant]
     Dosage: UNK
  7. MESTINON [Concomitant]
     Indication: MYASTHENIA GRAVIS
     Dosage: 180 MG/H, UNK
     Route: 048
  8. PREDONINE [Concomitant]
     Indication: MYASTHENIA GRAVIS
     Dosage: 25 MG, UNK
     Route: 048
  9. GASTER D [Concomitant]
     Indication: ABDOMINAL PAIN UPPER
     Dosage: 20 MG, UNK
     Route: 048
  10. GASTER D [Concomitant]
     Indication: NAUSEA
     Dosage: 20 MG, UNK
  11. ULOERLMIN [Concomitant]
     Indication: ABDOMINAL PAIN UPPER
     Dosage: 3.0 G, UNK
     Route: 048
     Dates: start: 20090129
  12. ULOERLMIN [Concomitant]
     Indication: NAUSEA
  13. SELBEX [Concomitant]
     Indication: ABDOMINAL PAIN UPPER
     Dosage: 150 MG, UNK
     Route: 048
     Dates: start: 20090205
  14. SELBEX [Concomitant]
     Indication: NAUSEA
  15. PURSENNID                               /SCH/ [Concomitant]
     Indication: CONSTIPATION
     Dosage: 12 MG, UNK
     Route: 048
     Dates: start: 20090204
  16. RIZE [Concomitant]
     Indication: INSOMNIA
     Dosage: 5 MG, UNK
     Route: 048
     Dates: start: 20090213

REACTIONS (6)
  - EPIGASTRIC DISCOMFORT [None]
  - IMMUNOSUPPRESSANT DRUG LEVEL DECREASED [None]
  - LYMPHOCYTE COUNT INCREASED [None]
  - MIGRAINE [None]
  - NAUSEA [None]
  - OEDEMA PERIPHERAL [None]
